FAERS Safety Report 8190405-8 (Version None)
Quarter: 2012Q1

REPORT INFORMATION
  Report Type: 
  Country: None (occurrence: None)
  Receive Date: 20120307
  Receipt Date: 20120227
  Transmission Date: 20120608
  Serious: No
  Sender: FDA-Public Use
  Company Number: US-BAYER-2012-019977

PATIENT
  Age: 91 Year
  Sex: Female
  Weight: 54 kg

DRUGS (2)
  1. LEVOTHYROXINE SODIUM [Concomitant]
  2. ALEVE (CAPLET) [Suspect]
     Indication: BACK PAIN
     Dosage: 2 DF, QD
     Route: 048
     Dates: start: 20111201, end: 20120227

REACTIONS (2)
  - NO ADVERSE EVENT [None]
  - BACK PAIN [None]
